FAERS Safety Report 6398989-7 (Version None)
Quarter: 2009Q4

REPORT INFORMATION
  Report Type: 
  Country: None (occurrence: None)
  Receive Date: 20091013
  Receipt Date: 20091009
  Transmission Date: 20100525
  Serious: Yes (Life-Threatening, Hospitalization)
  Sender: FDA-Public Use
  Company Number: FR-WYE-G03615409

PATIENT
  Sex: Male
  Weight: 80 kg

DRUGS (4)
  1. TORISEL [Suspect]
     Indication: RENAL CANCER METASTATIC
     Dosage: UNKNOWN
     Route: 042
     Dates: start: 20081114, end: 20090401
  2. TORISEL [Suspect]
     Dosage: DOSE REDUCED; 20 MG ONCE WEEKLY
     Route: 042
     Dates: start: 20090410, end: 20090424
  3. AVASTIN [Suspect]
     Indication: RENAL CANCER METASTATIC
     Dosage: UNKNOWN
     Route: 042
     Dates: start: 20081114, end: 20090301
  4. AVASTIN [Suspect]
     Dosage: DOSE REDUCED; 840 MG ONCE EVERY 2 WEEKS
     Route: 042
     Dates: start: 20090410, end: 20090424

REACTIONS (1)
  - PNEUMOTHORAX [None]
